FAERS Safety Report 11792901 (Version 1)
Quarter: 2015Q4

REPORT INFORMATION
  Report Type: Spontaneous
  Country: US (occurrence: None)
  Receive Date: 20151130
  Receipt Date: 20151130
  Transmission Date: 20160305
  Serious: Yes (Other)
  Sender: FDA-Public Use
  Company Number: 2015US-106722

PATIENT
  Age: 46 Year
  Sex: Male

DRUGS (3)
  1. GABAPENTIN (GABAPENTIN) UNKNOWN [Suspect]
     Active Substance: GABAPENTIN
     Indication: BACK PAIN
     Route: 065
  2. GABAPENTIN (GABAPENTIN) UNKNOWN [Suspect]
     Active Substance: GABAPENTIN
     Indication: ANXIETY
     Route: 065
  3. HYDROCODONE [Concomitant]
     Active Substance: HYDROCODONE

REACTIONS (2)
  - Oedema peripheral [None]
  - Gait disturbance [None]
